FAERS Safety Report 19882230 (Version 5)
Quarter: 2022Q2

REPORT INFORMATION
  Report Type: Report from Study
  Country: GB (occurrence: GB)
  Receive Date: 20210924
  Receipt Date: 20220614
  Transmission Date: 20220720
  Serious: Yes (Hospitalization)
  Sender: FDA-Public Use
  Company Number: GB-ABBVIE-21P-167-4075239-00

PATIENT
  Age: 2 Year
  Sex: Female
  Weight: 10.8 kg

DRUGS (18)
  1. VENETOCLAX [Suspect]
     Active Substance: VENETOCLAX
     Indication: Refractory cancer
     Dosage: VIA NASOGASTRIC TUBE
     Route: 050
     Dates: start: 20210802, end: 20210802
  2. VENETOCLAX [Suspect]
     Active Substance: VENETOCLAX
     Indication: Recurrent cancer
     Dosage: VIA NASOGASTRIC TUBE
     Route: 050
     Dates: start: 20210803, end: 20210811
  3. VENETOCLAX [Suspect]
     Active Substance: VENETOCLAX
     Dosage: VIA NASOGASTRIC TUBE
     Route: 050
     Dates: start: 20210823, end: 20210901
  4. CYCLOPHOSPHAMIDE [Suspect]
     Active Substance: CYCLOPHOSPHAMIDE
     Indication: Recurrent cancer
     Dosage: 5 DAYS EVERY 21 DAYS
     Route: 042
     Dates: start: 20210802, end: 20210827
  5. CYCLOPHOSPHAMIDE [Suspect]
     Active Substance: CYCLOPHOSPHAMIDE
     Indication: Refractory cancer
  6. TOPOTECAN HYDROCHLORIDE [Suspect]
     Active Substance: TOPOTECAN HYDROCHLORIDE
     Indication: Recurrent cancer
     Dosage: 5 DAYS EVERY 21 DAYS
     Route: 042
     Dates: start: 20210802, end: 20210827
  7. TOPOTECAN HYDROCHLORIDE [Suspect]
     Active Substance: TOPOTECAN HYDROCHLORIDE
     Indication: Refractory cancer
  8. DEXAMETHASONE [Concomitant]
     Active Substance: DEXAMETHASONE
     Indication: Prophylaxis of nausea and vomiting
     Route: 048
     Dates: start: 20210808
  9. ONDANSETRON [Concomitant]
     Active Substance: ONDANSETRON
     Indication: Vomiting
     Dosage: THREE TIMES A DAY  AS REQUIRED
     Route: 042
     Dates: start: 20210712
  10. ONDANSETRON [Concomitant]
     Active Substance: ONDANSETRON
     Dosage: THREE TIMES A DAY  AS REQUIRED
     Route: 048
     Dates: start: 20210727
  11. PARACETAMOL ALCOHOL FREE [Concomitant]
     Indication: Pain management
     Dosage: EVERY  6 HOURS AS REQUIRED
     Route: 048
     Dates: start: 20210802
  12. ACETAMINOPHEN [Concomitant]
     Active Substance: ACETAMINOPHEN
     Indication: Pain management
     Dosage: EVERY  6 HOURS AS REQUIRED
     Route: 042
     Dates: start: 20210802
  13. MELATONIN [Concomitant]
     Active Substance: MELATONIN
     Indication: Sleep disorder therapy
     Route: 048
     Dates: start: 20210801
  14. METOCLOPRAMIDE [Concomitant]
     Active Substance: METOCLOPRAMIDE
     Indication: Prophylaxis of nausea and vomiting
     Route: 048
     Dates: start: 20210801
  15. METOCLOPRAMIDE [Concomitant]
     Active Substance: METOCLOPRAMIDE
     Route: 042
     Dates: start: 20210803
  16. FUROSEMIDE [Concomitant]
     Active Substance: FUROSEMIDE
     Indication: Transfusion
     Dosage: 4 TIMES PER DAY AS REQUIRED
     Route: 042
     Dates: start: 20210805
  17. FUROSEMIDE [Concomitant]
     Active Substance: FUROSEMIDE
     Indication: Prophylaxis
  18. METHADONE [Concomitant]
     Active Substance: METHADONE HYDROCHLORIDE
     Indication: Pain management
     Route: 048
     Dates: start: 20210805

REACTIONS (1)
  - Parainfluenzae virus infection [Not Recovered/Not Resolved]

NARRATIVE: CASE EVENT DATE: 20210909
